FAERS Safety Report 25669688 (Version 1)
Quarter: 2025Q3

REPORT INFORMATION
  Report Type: Report from Study
  Country: CN (occurrence: CN)
  Receive Date: 20250812
  Receipt Date: 20250812
  Transmission Date: 20251021
  Serious: Yes (Other)
  Sender: ROCHE
  Company Number: CN-ROCHE-10000026159

PATIENT
  Age: 58 Year
  Sex: Male

DRUGS (18)
  1. POLATUZUMAB VEDOTIN [Suspect]
     Active Substance: POLATUZUMAB VEDOTIN
     Indication: Diffuse large B-cell lymphoma
     Route: 042
     Dates: start: 20240609, end: 20240609
  2. RITUXIMAB [Suspect]
     Active Substance: RITUXIMAB
     Indication: Diffuse large B-cell lymphoma
     Route: 042
     Dates: start: 20240608, end: 20240608
  3. CYCLOPHOSPHAMIDE [Suspect]
     Active Substance: CYCLOPHOSPHAMIDE
     Indication: Diffuse large B-cell lymphoma
     Route: 042
     Dates: start: 20240609, end: 20240609
  4. PREDNISONE [Suspect]
     Active Substance: PREDNISONE
     Indication: Diffuse large B-cell lymphoma
     Dosage: ON 17-AUG-2024, HE RECEIVED THE MOST RECENT DOSE OF PREDNISONE AT 100 MG PRIOR TO AE
     Route: 048
     Dates: end: 20240821
  5. EPIRUBICIN [Suspect]
     Active Substance: EPIRUBICIN
     Indication: Diffuse large B-cell lymphoma
     Route: 042
     Dates: start: 20240609, end: 20240609
  6. EPIRUBICIN [Suspect]
     Active Substance: EPIRUBICIN
     Route: 042
  7. DEXAMETHASONE [Suspect]
     Active Substance: DEXAMETHASONE
     Indication: Diffuse large B-cell lymphoma
     Route: 042
     Dates: start: 20240608, end: 20240609
  8. HERBALS [Concomitant]
     Active Substance: HERBALS
     Route: 048
     Dates: start: 2012
  9. Tathion injection [Concomitant]
     Route: 042
     Dates: start: 20240913, end: 20240913
  10. Omeprazole sodium for injection [Concomitant]
     Route: 042
     Dates: start: 20240913, end: 20240913
  11. DEXAMETHASONE SODIUM PHOSPHATE [Concomitant]
     Active Substance: DEXAMETHASONE SODIUM PHOSPHATE
     Route: 042
     Dates: start: 20240913, end: 20240913
  12. DIPHENHYDRAMINE HYDROCHLORIDE [Concomitant]
     Active Substance: DIPHENHYDRAMINE HYDROCHLORIDE
     Route: 042
     Dates: start: 20240913, end: 20240913
  13. PROMETHAZINE [Concomitant]
     Active Substance: PROMETHAZINE HYDROCHLORIDE
     Route: 030
     Dates: start: 20240913, end: 20240913
  14. Tropisetron hydrochloride injection [Concomitant]
     Route: 042
     Dates: start: 20240913, end: 20240913
  15. ESOMEPRAZOLE MAGNESIUM [Concomitant]
     Active Substance: ESOMEPRAZOLE MAGNESIUM
     Route: 048
     Dates: start: 20240913, end: 20240913
  16. INSULIN HUMAN [Concomitant]
     Active Substance: INSULIN HUMAN
     Route: 042
     Dates: start: 20241007, end: 20241010
  17. SODIUM BICARBONATE [Concomitant]
     Active Substance: SODIUM BICARBONATE
     Route: 042
     Dates: start: 20241007, end: 20241008
  18. Potassium citrate granules [Concomitant]
     Route: 048
     Dates: start: 20241009, end: 20241010

REACTIONS (10)
  - Blood lactate dehydrogenase increased [Recovered/Resolved]
  - Lymphocyte count decreased [Recovered/Resolved]
  - Blood lactate dehydrogenase increased [Recovered/Resolved]
  - Hypoproteinaemia [Recovered/Resolved]
  - Platelet count decreased [Recovered/Resolved]
  - Hyponatraemia [Recovered/Resolved]
  - Anaemia [Recovered/Resolved]
  - Leukopenia [Recovered/Resolved]
  - Hypokalaemia [Recovered/Resolved]
  - Blood cholinesterase decreased [Recovered/Resolved]

NARRATIVE: CASE EVENT DATE: 20240612
